FAERS Safety Report 20660377 (Version 1)
Quarter: 2022Q1

REPORT INFORMATION
  Report Type: Spontaneous
  Country: DE (occurrence: DE)
  Receive Date: 20220331
  Receipt Date: 20220331
  Transmission Date: 20220423
  Serious: Yes (Death)
  Sender: FDA-Public Use
  Company Number: DE-INCYTE CORPORATION-2022IN003160

PATIENT

DRUGS (1)
  1. PEMAZYRE [Suspect]
     Active Substance: PEMIGATINIB
     Indication: Gene mutation
     Dosage: 13.5 MILLIGRAM
     Route: 065

REACTIONS (2)
  - Gene mutation [Fatal]
  - Off label use [Unknown]

NARRATIVE: CASE EVENT DATE: 20210101
